FAERS Safety Report 5309497-6 (Version None)
Quarter: 2007Q2

REPORT INFORMATION
  Report Type: 
  Country: None (occurrence: None)
  Receive Date: 20070424
  Receipt Date: 20050111
  Transmission Date: 20071010
  Serious: Yes (Hospitalization)
  Sender: FDA-Public Use
  Company Number: 210957

PATIENT
  Age: 43 Year
  Sex: Female
  Weight: 85.3 kg

DRUGS (11)
  1. RITUXAN [Suspect]
     Indication: SYSTEMIC LUPUS ERYTHEMATOSUS
     Dosage: SEE IMAGE
     Route: 042
     Dates: start: 20040105, end: 20040126
  2. RITUXAN [Suspect]
     Indication: SYSTEMIC LUPUS ERYTHEMATOSUS
     Dosage: SEE IMAGE
     Route: 042
     Dates: start: 20041021, end: 20041021
  3. METOPROLOL TARTRATE [Concomitant]
  4. FOLATE (FOLATE SODIUM) [Concomitant]
  5. MAXZIDE [Concomitant]
  6. GLYBURIDE [Concomitant]
  7. PREDNISONE TAB [Concomitant]
  8. OS-CAL+D (CALCIUM NOS, CHOLECALCIFEROL) [Concomitant]
  9. LISINOPRIL [Concomitant]
  10. LANSOPRAZOLE [Concomitant]
  11. FLEXERIL [Concomitant]

REACTIONS (9)
  - ACTIVATED PARTIAL THROMBOPLASTIN TIME PROLONGED [None]
  - ANTIPHOSPHOLIPID SYNDROME [None]
  - CONDITION AGGRAVATED [None]
  - FIBRIN D DIMER INCREASED [None]
  - LEUKOPENIA [None]
  - MENINGITIS [None]
  - PANCREATITIS ACUTE [None]
  - PULMONARY EMBOLISM [None]
  - SYSTEMIC LUPUS ERYTHEMATOSUS [None]
